APPROVED DRUG PRODUCT: ESOMEPRAZOLE SODIUM
Active Ingredient: ESOMEPRAZOLE SODIUM
Strength: EQ 40MG BASE/VIAL
Dosage Form/Route: INJECTABLE;INTRAVENOUS
Application: A202686 | Product #002
Applicant: PHARMOBEDIENT CONSULTING LLC
Approved: May 17, 2017 | RLD: No | RS: No | Type: DISCN